FAERS Safety Report 8305225-0 (Version None)
Quarter: 2012Q2

REPORT INFORMATION
  Report Type: 
  Country: None (occurrence: None)
  Receive Date: 20120423
  Receipt Date: 20120410
  Transmission Date: 20120825
  Serious: No
  Sender: FDA-Public Use
  Company Number: US-JNJFOC-20120405194

PATIENT
  Sex: Female
  Weight: 88 kg

DRUGS (5)
  1. FENTANYL-100 [Suspect]
     Indication: BACK PAIN
     Route: 062
     Dates: start: 20110101
  2. GABAPENTIN [Concomitant]
     Indication: NEURALGIA
     Route: 048
     Dates: start: 20110101
  3. ZOLPIDEM [Concomitant]
     Indication: SLEEP DISORDER
     Route: 048
     Dates: start: 20070101
  4. ESTRADIOL [Concomitant]
     Indication: HOT FLUSH
     Route: 048
  5. AMITRIPTYLINE HCL [Concomitant]
     Indication: NEURALGIA
     Route: 048
     Dates: start: 20110101

REACTIONS (2)
  - NEURALGIA [None]
  - WRONG TECHNIQUE IN DRUG USAGE PROCESS [None]
